FAERS Safety Report 4639120-5 (Version None)
Quarter: 2005Q2

REPORT INFORMATION
  Report Type: 
  Country: None (occurrence: None)
  Receive Date: 20050419
  Receipt Date: 20030116
  Transmission Date: 20051028
  Serious: Yes (Hospitalization)
  Sender: FDA-Public Use
  Company Number: US-MERCK-0301USA01540

PATIENT
  Age: 58 Year
  Sex: Female
  Weight: 79 kg

DRUGS (9)
  1. VIOXX [Suspect]
     Indication: PAIN
     Route: 048
     Dates: start: 20000601, end: 20000901
  2. VIOXX [Suspect]
     Route: 048
     Dates: start: 20000901
  3. VIOXX [Suspect]
     Indication: INTERVERTEBRAL DISC DEGENERATION
     Route: 048
     Dates: start: 20000601, end: 20000901
  4. VIOXX [Suspect]
     Route: 048
     Dates: start: 20000901
  5. MOTRIN [Concomitant]
     Indication: ARTHRITIS
     Route: 065
  6. PAXIL [Concomitant]
     Indication: DEPRESSION
     Route: 065
     Dates: start: 20010301
  7. PAXIL [Concomitant]
     Route: 065
     Dates: end: 20010201
  8. BENADRYL [Concomitant]
     Route: 065
  9. CORRECTOL (DOCUSATE SODIUM (+) PHENOLPHTHALEIN) [Concomitant]
     Route: 065

REACTIONS (43)
  - ACTIVATED PARTIAL THROMBOPLASTIN TIME PROLONGED [None]
  - ANXIETY [None]
  - BACK PAIN [None]
  - BLOOD CHOLESTEROL INCREASED [None]
  - BRONCHITIS [None]
  - CAROTID ARTERY STENOSIS [None]
  - CEREBRAL INFARCTION [None]
  - CEREBROVASCULAR ACCIDENT [None]
  - CHRONIC OBSTRUCTIVE PULMONARY DISEASE [None]
  - CONSTIPATION [None]
  - COUGH [None]
  - DERMATITIS [None]
  - DRUG ERUPTION [None]
  - DYSPEPSIA [None]
  - DYSPNOEA [None]
  - ECZEMA INFECTED [None]
  - EMOTIONAL DISTRESS [None]
  - FALL [None]
  - GASTRIC DISORDER [None]
  - GASTRITIS [None]
  - GOITRE [None]
  - HEMIPARESIS [None]
  - HYPERLIPIDAEMIA [None]
  - HYPERTHYROIDISM [None]
  - HYPOAESTHESIA [None]
  - INJURY [None]
  - INTERNATIONAL NORMALISED RATIO INCREASED [None]
  - LOW DENSITY LIPOPROTEIN INCREASED [None]
  - NASOPHARYNGITIS [None]
  - NICOTINE DEPENDENCE [None]
  - OEDEMA PERIPHERAL [None]
  - PAIN IN EXTREMITY [None]
  - PARAESTHESIA [None]
  - PHARYNGOLARYNGEAL PAIN [None]
  - PNEUMONIA [None]
  - PROTHROMBIN TIME PROLONGED [None]
  - SINUS CONGESTION [None]
  - SINUSITIS [None]
  - SYNCOPE [None]
  - THYROID MASS [None]
  - THYROID PAIN [None]
  - TRANSIENT ISCHAEMIC ATTACK [None]
  - VISION BLURRED [None]
